FAERS Safety Report 15428416 (Version 1)
Quarter: 2018Q3

REPORT INFORMATION
  Report Type: Spontaneous
  Country: FR (occurrence: FR)
  Receive Date: 20180926
  Receipt Date: 20180926
  Transmission Date: 20181010
  Serious: Yes (Hospitalization)
  Sender: FDA-Public Use
  Company Number: FR-UCBSA-2018043546

PATIENT
  Age: 27 Year
  Sex: Female
  Weight: 50 kg

DRUGS (2)
  1. VIMPAT [Suspect]
     Active Substance: LACOSAMIDE
     Indication: POISONING DELIBERATE
     Dosage: 2 G, TOTAL
     Route: 048
     Dates: start: 20180703, end: 20180703
  2. KEPPRA [Suspect]
     Active Substance: LEVETIRACETAM
     Indication: POISONING DELIBERATE
     Dosage: 10G DAILY
     Route: 048
     Dates: start: 20180703, end: 20180703

REACTIONS (3)
  - Coma [Recovered/Resolved]
  - Intentional overdose [Unknown]
  - Miosis [Recovered/Resolved]

NARRATIVE: CASE EVENT DATE: 20180703
